FAERS Safety Report 24671070 (Version 1)
Quarter: 2024Q4

REPORT INFORMATION
  Report Type: Spontaneous
  Country: FR (occurrence: FR)
  Receive Date: 20241127
  Receipt Date: 20241127
  Transmission Date: 20250115
  Serious: Yes (Hospitalization, Other)
  Sender: VERTEX
  Company Number: None

PATIENT
  Age: 3 Year
  Sex: Male
  Weight: 11 kg

DRUGS (2)
  1. ELEXACAFTOR\IVACAFTOR\TEZACAFTOR [Suspect]
     Active Substance: ELEXACAFTOR\IVACAFTOR\TEZACAFTOR
     Indication: Cystic fibrosis
     Dosage: 1 SACHET IN AM (60MG IVA/ 40MG TEZA / 80MG ELEXA)
     Route: 048
     Dates: start: 20231208
  2. KALYDECO [Suspect]
     Active Substance: IVACAFTOR
     Indication: Cystic fibrosis
     Dosage: 1 SACHET IN PM
     Route: 048
     Dates: start: 20231208

REACTIONS (2)
  - Intracranial pressure increased [Recovering/Resolving]
  - Arnold-Chiari malformation [Unknown]

NARRATIVE: CASE EVENT DATE: 20241015
